FAERS Safety Report 15363137 (Version 1)
Quarter: 2018Q3

REPORT INFORMATION
  Report Type: Spontaneous
  Country: US (occurrence: US)
  Receive Date: 20180907
  Receipt Date: 20180907
  Transmission Date: 20181010
  Serious: No
  Sender: FDA-Public Use
  Company Number: US-BAUSCH-BL-2018-023339

PATIENT
  Age: 44 Year
  Sex: Male

DRUGS (2)
  1. SILIQ [Suspect]
     Active Substance: BRODALUMAB
     Indication: PSORIASIS
     Dosage: AT WEEKS 0, 1, AND 2 THEN EVERY 2 WEEKS THEREAFTER
     Route: 058
     Dates: start: 20180602, end: 201806
  2. SILIQ [Suspect]
     Active Substance: BRODALUMAB
     Dosage: AT WEEKS 0, 1, AND 2 THEN EVERY 2 WEEKS THEREAFTER
     Route: 058
     Dates: start: 201806, end: 20180820

REACTIONS (2)
  - Depression [Unknown]
  - Mood altered [Unknown]

NARRATIVE: CASE EVENT DATE: 2018
